FAERS Safety Report 6553847-X (Version None)
Quarter: 2010Q1

REPORT INFORMATION
  Report Type: 
  Country: None (occurrence: None)
  Receive Date: 20100127
  Receipt Date: 20100122
  Transmission Date: 20100710
  Serious: Yes (Death, Hospitalization)
  Sender: FDA-Public Use
  Company Number: FR-ROCHE-559294

PATIENT
  Sex: Female
  Weight: 86 kg

DRUGS (11)
  1. HERCEPTIN [Suspect]
     Route: 042
     Dates: start: 20070401, end: 20071001
  2. FLUOROURACIL [Suspect]
     Route: 042
     Dates: start: 20061201, end: 20070201
  3. TAXOTERE [Suspect]
     Route: 042
     Dates: start: 20070201, end: 20070401
  4. ENDOXAN [Suspect]
     Route: 042
     Dates: start: 20061201, end: 20070201
  5. EPIRUBICIN HYDROCHLORIDE [Suspect]
     Dosage: DRUG REPORTED AS: CHLORHYDRATE D' EPIRUBICINE
     Route: 042
     Dates: start: 20061201, end: 20070201
  6. CRESTOR [Concomitant]
  7. INIPOMP [Concomitant]
  8. CYCLOPHOSPHAMIDE [Concomitant]
  9. VINCRISTINE [Concomitant]
  10. DOXORUBICIN HCL [Concomitant]
  11. DEXAMETHASONE [Concomitant]

REACTIONS (1)
  - ACUTE MYELOID LEUKAEMIA [None]
